FAERS Safety Report 14366529 (Version 1)
Quarter: 2018Q1

REPORT INFORMATION
  Report Type: Spontaneous
  Country: US (occurrence: US)
  Receive Date: 20180108
  Receipt Date: 20180108
  Transmission Date: 20180509
  Serious: No
  Sender: FDA-Public Use
  Company Number: None

PATIENT
  Age: 62 Year
  Sex: Female

DRUGS (1)
  1. TEMOZOLOMIDE CAP 100MG [Suspect]
     Active Substance: TEMOZOLOMIDE
     Indication: BRAIN NEOPLASM MALIGNANT
     Dosage: 380MG QD X 5 DAYS PO
     Route: 048
     Dates: start: 20170601

REACTIONS (2)
  - Rash pruritic [None]
  - Mechanical urticaria [None]

NARRATIVE: CASE EVENT DATE: 20171201
